FAERS Safety Report 24847292 (Version 1)
Quarter: 2025Q1

REPORT INFORMATION
  Report Type: Spontaneous
  Country: US (occurrence: US)
  Receive Date: 20250116
  Receipt Date: 20250116
  Transmission Date: 20250409
  Serious: Yes (Other)
  Sender: STRIDES
  Company Number: US-STRIDES ARCOLAB LIMITED-2024SP014819

PATIENT
  Age: 69 Year
  Sex: Male

DRUGS (4)
  1. TRIAMCINOLONE ACETONIDE [Suspect]
     Active Substance: TRIAMCINOLONE ACETONIDE
     Indication: Xanthogranuloma
     Route: 065
  2. TRIAMCINOLONE ACETONIDE [Suspect]
     Active Substance: TRIAMCINOLONE ACETONIDE
     Indication: Monoclonal gammopathy
  3. PREDNISOLONE [Suspect]
     Active Substance: PREDNISOLONE
     Indication: Xanthogranuloma
     Route: 065
  4. PREDNISOLONE [Suspect]
     Active Substance: PREDNISOLONE
     Indication: Monoclonal gammopathy
     Route: 065

REACTIONS (2)
  - Drug resistance [Unknown]
  - Therapy partial responder [Unknown]
